FAERS Safety Report 7871120-4 (Version None)
Quarter: 2011Q4

REPORT INFORMATION
  Report Type: 
  Country: None (occurrence: None)
  Receive Date: 20111029
  Receipt Date: 20110225
  Transmission Date: 20120403
  Serious: No
  Sender: FDA-Public Use
  Company Number: US-AMGEN-USASP2011010892

PATIENT
  Age: 48 Year
  Sex: Female
  Weight: 56.689 kg

DRUGS (5)
  1. MAGNESIUM [Concomitant]
     Dosage: 30 MG, UNK
  2. FISH OIL [Concomitant]
  3. MULTIVITAMIN                       /00097801/ [Concomitant]
  4. PLAQUENIL [Concomitant]
  5. ENBREL [Suspect]
     Indication: PRODUCT USED FOR UNKNOWN INDICATION
     Dosage: 50 MG, QWK
     Route: 058

REACTIONS (2)
  - INJECTION SITE ERYTHEMA [None]
  - INJECTION SITE INDURATION [None]
